FAERS Safety Report 25351583 (Version 1)
Quarter: 2025Q2

REPORT INFORMATION
  Report Type: Spontaneous
  Country: US (occurrence: None)
  Receive Date: 20250522
  Receipt Date: 20250522
  Transmission Date: 20250717
  Serious: No
  Sender: FDA-CTU
  Company Number: None

PATIENT
  Age: 58 Year
  Sex: Male
  Weight: 94.3 kg

DRUGS (1)
  1. CABOMETYX [Suspect]
     Active Substance: CABOZANTINIB S-MALATE
     Indication: Urinary tract neoplasm
     Dosage: FREQUENCY : DAILY;?
     Route: 048
     Dates: start: 20240726

REACTIONS (6)
  - Diarrhoea [None]
  - Fatigue [None]
  - Pancreatic mass [None]
  - Pancreatitis [None]
  - Metastases to lung [None]
  - Metastases to liver [None]

NARRATIVE: CASE EVENT DATE: 20250201
